FAERS Safety Report 8356268-2 (Version None)
Quarter: 2012Q2

REPORT INFORMATION
  Report Type: 
  Country: None (occurrence: None)
  Receive Date: 20120510
  Receipt Date: 20120501
  Transmission Date: 20120825
  Serious: Yes (Death)
  Sender: FDA-Public Use
  Company Number: JPI-P-021226

PATIENT
  Age: 43 Year
  Sex: Female

DRUGS (4)
  1. TEMAZEPAM [Concomitant]
  2. XYREM [Suspect]
     Indication: INSOMNIA
     Dosage: UNKNOWN, ORAL
     Route: 048
     Dates: start: 20080827
  3. CLONAZEPAM [Concomitant]
  4. DIVALPROEX SODIUM [Concomitant]

REACTIONS (2)
  - NASOPHARYNGITIS [None]
  - BRONCHITIS [None]
